FAERS Safety Report 18593972 (Version 1)
Quarter: 2020Q4

REPORT INFORMATION
  Report Type: Spontaneous
  Country: GB (occurrence: GB)
  Receive Date: 20201209
  Receipt Date: 20201209
  Transmission Date: 20210114
  Serious: Yes (Death)
  Sender: FDA-Public Use
  Company Number: GB-TEVA-2020-GB-1855436

PATIENT
  Age: 35 Year
  Sex: Female
  Weight: 44.45 kg

DRUGS (1)
  1. PREDNISOLONE. [Suspect]
     Active Substance: PREDNISOLONE
     Indication: COLITIS
     Route: 048
     Dates: start: 20200814, end: 20200920

REACTIONS (3)
  - Suicidal ideation [Fatal]
  - Failure to suspend medication [Fatal]
  - Completed suicide [Fatal]

NARRATIVE: CASE EVENT DATE: 20200920
